FAERS Safety Report 17159118 (Version 1)
Quarter: 2019Q4

REPORT INFORMATION
  Report Type: Spontaneous
  Country: US (occurrence: US)
  Receive Date: 20191214
  Receipt Date: 20191214
  Transmission Date: 20200122
  Serious: No
  Sender: FDA-Public Use
  Company Number: None

PATIENT
  Age: 21 Year
  Sex: Female
  Weight: 54.9 kg

DRUGS (1)
  1. ASPERCREME WARMING NO MESS [Suspect]
     Active Substance: CAPSAICIN
     Dosage: ?          QUANTITY:1 GEL;OTHER FREQUENCY:ONLY USED 1X;OTHER ROUTE:TOPICAL SKIN?
     Dates: start: 20191214, end: 20191214

REACTIONS (3)
  - Application site erythema [None]
  - Application site pain [None]
  - Application site swelling [None]

NARRATIVE: CASE EVENT DATE: 20191214
